FAERS Safety Report 24231069 (Version 1)
Quarter: 2024Q3

REPORT INFORMATION
  Report Type: Spontaneous
  Country: US (occurrence: US)
  Receive Date: 20240821
  Receipt Date: 20240821
  Transmission Date: 20241016
  Serious: No
  Sender: GLENMARK
  Company Number: US-GLENMARK PHARMACEUTICALS-2024GMK089000

PATIENT

DRUGS (2)
  1. TROSPIUM CHLORIDE [Suspect]
     Active Substance: TROSPIUM CHLORIDE
     Indication: Hypertonic bladder
     Dosage: UNK
     Route: 065
  2. TROSPIUM CHLORIDE [Suspect]
     Active Substance: TROSPIUM CHLORIDE
     Dosage: 20 MILLIGRAM, BID
     Route: 065

REACTIONS (4)
  - Dry mouth [Unknown]
  - Product quality issue [Unknown]
  - Drug ineffective [Unknown]
  - Product dispensing error [Unknown]
